FAERS Safety Report 5826143-3 (Version None)
Quarter: 2008Q3

REPORT INFORMATION
  Report Type: 
  Country: None (occurrence: None)
  Receive Date: 20080729
  Receipt Date: 20080718
  Transmission Date: 20090109
  Serious: Yes (Other)
  Sender: FDA-Public Use
  Company Number: JP-ELI_LILLY_AND_COMPANY-JP200806006034

PATIENT
  Sex: Female

DRUGS (6)
  1. RALOXIFENE HYDROCHLORIDE [Suspect]
     Indication: OSTEOPOROSIS POSTMENOPAUSAL
     Dosage: 60 MG, DAILY (1/D)
     Route: 048
     Dates: start: 20050407, end: 20080313
  2. CALSLOT [Concomitant]
     Indication: HYPERTENSION
     Dosage: 10 MG, DAILY (1/D)
     Route: 048
     Dates: start: 19990612, end: 20071203
  3. D ALFA [Concomitant]
     Indication: OSTEOPOROSIS POSTMENOPAUSAL
     Dosage: 0.5 UG, DAILY (1/D)
     Route: 048
     Dates: start: 20021119
  4. CALCITONIN SALMON [Concomitant]
     Indication: OSTEOPOROSIS POSTMENOPAUSAL
     Dosage: 10 IU, 2/W
     Route: 030
     Dates: start: 20050407
  5. ASPIRIN [Concomitant]
     Indication: MYOCARDIAL ISCHAEMIA
     Dosage: 100 MG, DAILY (1/D)
     Route: 048
     Dates: start: 20051226
  6. INDOMETHACIN [Concomitant]
     Indication: BACK PAIN
     Dosage: 1 D/F, DAILY (1/D)
     Route: 023
     Dates: start: 20060412

REACTIONS (1)
  - ANGINA PECTORIS [None]
